FAERS Safety Report 24591536 (Version 2)
Quarter: 2024Q4

REPORT INFORMATION
  Report Type: Spontaneous
  Country: US (occurrence: US)
  Receive Date: 20241108
  Receipt Date: 20241113
  Transmission Date: 20250115
  Serious: Yes (Other)
  Sender: DR REDDYS
  Company Number: None

PATIENT
  Age: 73 Year
  Sex: Female

DRUGS (7)
  1. DOXYCYCLINE [Suspect]
     Active Substance: DOXYCYCLINE
     Indication: Pemphigoid
  2. DOXYCYCLINE [Suspect]
     Active Substance: DOXYCYCLINE
     Indication: Ocular pemphigoid
  3. PREDNISONE [Concomitant]
     Active Substance: PREDNISONE
     Indication: Pemphigoid
  4. PREDNISONE [Concomitant]
     Active Substance: PREDNISONE
     Indication: Ocular pemphigoid
  5. NIACINAMIDE [Concomitant]
     Active Substance: NIACINAMIDE
     Indication: Pemphigoid
  6. NIACINAMIDE [Concomitant]
     Active Substance: NIACINAMIDE
     Indication: Ocular pemphigoid
  7. DUPILUMAB [Concomitant]
     Active Substance: DUPILUMAB
     Indication: Pemphigoid

REACTIONS (5)
  - Gastric ulcer haemorrhage [Unknown]
  - Anaemia [Unknown]
  - Gastrointestinal injury [Unknown]
  - Gastritis [Unknown]
  - Product use in unapproved indication [Unknown]
